FAERS Safety Report 4607491-1 (Version None)
Quarter: 2005Q1

REPORT INFORMATION
  Report Type: 
  Country: None (occurrence: None)
  Receive Date: 20050314
  Receipt Date: 20050303
  Transmission Date: 20050727
  Serious: Yes (Other)
  Sender: FDA-Public Use
  Company Number: CN-BRISTOL-MYERS SQUIBB COMPANY-12885216

PATIENT
  Age: 46 Year
  Sex: Male

DRUGS (2)
  1. TAXOL [Suspect]
     Indication: NASOPHARYNGEAL CANCER
     Route: 042
  2. RADIATION THERAPY [Concomitant]
     Indication: NASOPHARYNGEAL CANCER

REACTIONS (4)
  - ANOREXIA [None]
  - DERMATITIS [None]
  - DYSPHONIA [None]
  - WEIGHT DECREASED [None]
